FAERS Safety Report 6440138-0 (Version None)
Quarter: 2009Q4

REPORT INFORMATION
  Report Type: 
  Country: None (occurrence: None)
  Receive Date: 20091113
  Receipt Date: 20090209
  Transmission Date: 20100525
  Serious: No
  Sender: FDA-Public Use
  Company Number: A0767704A

PATIENT
  Age: 80 Year
  Sex: Male

DRUGS (9)
  1. CARVEDILOL [Suspect]
     Indication: HYPERTENSION
     Dosage: 1.5625MG TWICE PER DAY
     Route: 048
     Dates: start: 20090126
  2. NIASPAN [Concomitant]
  3. SIMVASTATIN [Concomitant]
  4. FINASTERIDE [Concomitant]
  5. BABY ASPIRIN [Concomitant]
  6. CALCIUM [Concomitant]
  7. MAGNESIUM [Concomitant]
  8. POTASSIUM CHLORIDE [Concomitant]
  9. ZINC [Concomitant]

REACTIONS (4)
  - BLOOD PRESSURE FLUCTUATION [None]
  - DIZZINESS [None]
  - DRUG ADMINISTRATION ERROR [None]
  - HEART RATE IRREGULAR [None]
